FAERS Safety Report 8205221-8 (Version None)
Quarter: 2012Q1

REPORT INFORMATION
  Report Type: 
  Country: None (occurrence: None)
  Receive Date: 20120313
  Receipt Date: 20120305
  Transmission Date: 20120608
  Serious: Yes (Other)
  Sender: FDA-Public Use
  Company Number: AR-ROCHE-1047599

PATIENT
  Sex: Female

DRUGS (2)
  1. LUCENTIS [Suspect]
     Indication: MACULAR DEGENERATION
     Route: 050
     Dates: start: 20110601
  2. LUCENTIS [Suspect]
     Route: 050
     Dates: start: 20120229

REACTIONS (2)
  - OCULAR DISCOMFORT [None]
  - EYE HAEMORRHAGE [None]
